FAERS Safety Report 9400201 (Version 1)
Quarter: 2013Q3

REPORT INFORMATION
  Report Type: Spontaneous
  Country: US (occurrence: US)
  Receive Date: 20130715
  Receipt Date: 20130715
  Transmission Date: 20140515
  Serious: Yes (Hospitalization)
  Sender: FDA-Public Use
  Company Number: US-BAYER-2013-085398

PATIENT
  Age: 27 Year
  Sex: Female

DRUGS (19)
  1. YAZ [Suspect]
  2. AMERGE [Concomitant]
     Indication: MIGRAINE
     Dosage: UNK
     Dates: start: 20081121
  3. ZYRTEC [Concomitant]
     Dosage: 10 MG, DAILY
     Dates: start: 20081121
  4. DIOVAN [Concomitant]
     Dosage: 80 MG, DAILY
     Dates: start: 20081121
  5. HYDROCHLOROTHIAZIDE [Concomitant]
     Dosage: 12.5 MG, DAILY
     Dates: start: 20081121
  6. MAXAIR [Concomitant]
     Dosage: UNK
     Dates: start: 20081121
  7. NEURONTIN [Concomitant]
     Dosage: 600 MG, TWICE DAILY
     Dates: start: 20081121
  8. PREVACID [Concomitant]
     Dosage: 20 MG, DAILY
     Dates: start: 20081121
  9. PULMICORT [Concomitant]
     Dosage: TWICE DAILY
     Dates: start: 20081121
  10. SEREVENT [Concomitant]
     Dosage: TWICE DAILY
     Dates: start: 20081121
  11. SINGULAIR [Concomitant]
     Dosage: 10 MG, DAILY
     Dates: start: 20081121
  12. TOPAMAX [Concomitant]
     Dosage: 125 MG, NIGHTLY
     Dates: start: 20081121
  13. TYLENOL PM [Concomitant]
     Dosage: NIGHTLY
     Dates: start: 20081121
  14. IBUPROFEN [Concomitant]
  15. CLARITIN [Concomitant]
  16. PROTONIX [Concomitant]
  17. FLEXERIL [Concomitant]
  18. OXYCODONE [Concomitant]
  19. BENADRYL [Concomitant]

REACTIONS (1)
  - Deep vein thrombosis [None]
